FAERS Safety Report 17727122 (Version 3)
Quarter: 2020Q2

REPORT INFORMATION
  Report Type: Spontaneous
  Country: JP (occurrence: JP)
  Receive Date: 20200430
  Receipt Date: 20200528
  Transmission Date: 20200714
  Serious: Yes (Hospitalization, Other)
  Sender: FDA-Public Use
  Company Number: JP-ABBVIE-20K-087-3368734-00

PATIENT
  Age: 79 Year
  Sex: Male
  Weight: 44 kg

DRUGS (15)
  1. BROTIZOLAM [Concomitant]
     Active Substance: BROTIZOLAM
     Indication: INSOMNIA
     Route: 048
     Dates: start: 201107
  2. VILDAGLIPTIN [Concomitant]
     Active Substance: VILDAGLIPTIN
     Indication: DIABETES MELLITUS
     Route: 048
     Dates: start: 20130611
  3. SILODOSIN. [Concomitant]
     Active Substance: SILODOSIN
     Dosage: PERORAL MEDICINE
     Route: 048
     Dates: start: 20200217
  4. VITANEURIN                         /02072701/ [Concomitant]
     Indication: PRODUCT USED FOR UNKNOWN INDICATION
     Route: 048
     Dates: start: 20180806
  5. PIOGLITAZONE                       /01460202/ [Concomitant]
     Active Substance: PIOGLITAZONE HYDROCHLORIDE
     Indication: DIABETES MELLITUS
     Route: 048
     Dates: start: 201108
  6. IMBRUVICA [Suspect]
     Active Substance: IBRUTINIB
     Indication: MANTLE CELL LYMPHOMA RECURRENT
     Dosage: IBRUTINIB:140MG
     Route: 048
     Dates: start: 20200218, end: 20200221
  7. MITIGLINIDE CALCIUM W/VOGLIBOSE [Concomitant]
     Indication: DIABETES MELLITUS
     Dosage: MITIGLINIDE CALCIUM HYDRATE/VOGLIBOSE COMBINED DRUG
     Route: 048
     Dates: start: 20160126
  8. VITANEURIN                         /02072701/ [Concomitant]
     Route: 048
     Dates: start: 20200217
  9. AVOLVE [Concomitant]
     Active Substance: DUTASTERIDE
     Indication: BENIGN PROSTATIC HYPERPLASIA
     Route: 048
     Dates: start: 20180806
  10. AVOLVE [Concomitant]
     Active Substance: DUTASTERIDE
     Route: 048
     Dates: start: 20200217
  11. CELECOX [Concomitant]
     Active Substance: CELECOXIB
     Indication: PRODUCT USED FOR UNKNOWN INDICATION
     Route: 048
     Dates: start: 20180806
  12. SILODOSIN. [Concomitant]
     Active Substance: SILODOSIN
     Indication: BENIGN PROSTATIC HYPERPLASIA
     Dosage: PERORAL MEDICINE
     Route: 048
     Dates: start: 20180806
  13. CELECOX [Concomitant]
     Active Substance: CELECOXIB
     Route: 048
     Dates: start: 20200217, end: 20200330
  14. IMBRUVICA [Suspect]
     Active Substance: IBRUTINIB
     Dosage: IBRUTINIB:140MG
     Route: 048
     Dates: start: 20200222, end: 20200330
  15. LANTUS XR [Concomitant]
     Active Substance: INSULIN GLARGINE
     Indication: DIABETES MELLITUS
     Route: 058
     Dates: start: 20111108

REACTIONS (5)
  - Pneumonia bacterial [Unknown]
  - Herpes zoster [Unknown]
  - Interstitial lung disease [Recovered/Resolved]
  - Cardiac failure [Unknown]
  - Sepsis [Unknown]

NARRATIVE: CASE EVENT DATE: 2020
